FAERS Safety Report 4356568-7 (Version None)
Quarter: 2004Q2

REPORT INFORMATION
  Report Type: 
  Country: None (occurrence: None)
  Receive Date: 20040507
  Receipt Date: 20040426
  Transmission Date: 20050107
  Serious: Yes (Hospitalization)
  Sender: FDA-Public Use
  Company Number: US-JNJFOC-20040405537

PATIENT
  Age: 75 Year
  Sex: Female
  Weight: 68.0396 kg

DRUGS (14)
  1. INFLIXIMAB (INFLIXIMAB, RECOMBINANT) LYOPHILIZED POWDER [Suspect]
     Indication: RHEUMATOID ARTHRITIS
     Dosage: INTRAVENOUS
     Route: 042
     Dates: start: 20000620, end: 20031022
  2. METHOTREXATE [Concomitant]
  3. PREDNISONE [Concomitant]
  4. TYLENOL (PARACETAMOL) TABLETS [Concomitant]
  5. TYLENOL W/ CODEINE NO. 3 [Concomitant]
  6. FOLIC ACID [Concomitant]
  7. ASPIRIN [Concomitant]
  8. LOPRESSOR [Concomitant]
  9. FUROSEMIDE [Concomitant]
  10. ACIPHEX [Concomitant]
  11. LIPITOR [Concomitant]
  12. ACTONEL [Concomitant]
  13. MULTIVITAMIN (MULTIVITAMINS) [Concomitant]
  14. TUMS (CALCIUM CARBONATE) [Concomitant]

REACTIONS (11)
  - ADRENAL INSUFFICIENCY [None]
  - ASTHENIA [None]
  - BLOOD POTASSIUM INCREASED [None]
  - ESCHERICHIA SEPSIS [None]
  - ESCHERICHIA URINARY TRACT INFECTION [None]
  - HAEMOGLOBIN DECREASED [None]
  - HYPOTENSION [None]
  - MENTAL STATUS CHANGES [None]
  - URINE ANALYSIS ABNORMAL [None]
  - WHITE BLOOD CELL COUNT INCREASED [None]
  - WHITE BLOOD CELLS URINE POSITIVE [None]
